FAERS Safety Report 7016889-6 (Version None)
Quarter: 2010Q3

REPORT INFORMATION
  Report Type: 
  Country: None (occurrence: None)
  Receive Date: 20100927
  Receipt Date: 20100917
  Transmission Date: 20110219
  Serious: Yes (Other)
  Sender: FDA-Public Use
  Company Number: US-AMGEN-QUU439355

PATIENT
  Sex: Female

DRUGS (3)
  1. NPLATE [Suspect]
     Indication: IDIOPATHIC THROMBOCYTOPENIC PURPURA
     Dates: start: 20070913, end: 20100610
  2. LIPITOR [Concomitant]
  3. DIOVAN HCT [Concomitant]

REACTIONS (2)
  - SPLENECTOMY [None]
  - THROMBOCYTOPENIA [None]
